FAERS Safety Report 7428836-3 (Version None)
Quarter: 2011Q2

REPORT INFORMATION
  Report Type: 
  Country: None (occurrence: None)
  Receive Date: 20110421
  Receipt Date: 20110323
  Transmission Date: 20111010
  Serious: Yes (Hospitalization, Other)
  Sender: FDA-Public Use
  Company Number: PHHY2011SE24216

PATIENT
  Sex: Male

DRUGS (10)
  1. BEHEPAN [Concomitant]
     Dosage: 1 MG, UNK
  2. PREDNISOLONE [Concomitant]
  3. CERTICAN [Suspect]
     Indication: IMMUNOSUPPRESSION
     Dosage: 4 MG, QD
     Dates: start: 20101105, end: 20110124
  4. FOLACIN [Concomitant]
     Dosage: 5 MG, UNK
  5. XYLOCAINE [Concomitant]
     Dosage: 20 MG/ML, UNK
  6. ARANESP [Concomitant]
     Dosage: 30 UG, UNK
  7. CINACALCET HYDROCHLORIDE [Concomitant]
     Dosage: 30 MG, UNK
  8. ORALOVITE [Concomitant]
  9. OMEPRAZOLE [Concomitant]
  10. SANDIMMUNE [Concomitant]

REACTIONS (3)
  - HICCUPS [None]
  - GASTRITIS [None]
  - DIARRHOEA [None]
